FAERS Safety Report 6410683-2 (Version None)
Quarter: 2009Q4

REPORT INFORMATION
  Report Type: 
  Country: None (occurrence: None)
  Receive Date: 20091022
  Receipt Date: 20091019
  Transmission Date: 20100525
  Serious: Yes (Life-Threatening)
  Sender: FDA-Public Use
  Company Number: JP-ASTRAZENECA-2009SE18466

PATIENT
  Age: 25878 Day
  Sex: Male
  Weight: 60 kg

DRUGS (2)
  1. OMEPRAL [Suspect]
     Indication: ABDOMINAL PAIN UPPER
     Route: 048
     Dates: start: 20090727, end: 20090902
  2. FOIPAN [Suspect]
     Indication: PANCREATITIS
     Route: 048
     Dates: start: 20090727, end: 20090902

REACTIONS (1)
  - PLATELET COUNT DECREASED [None]
